FAERS Safety Report 24563865 (Version 1)
Quarter: 2024Q4

REPORT INFORMATION
  Report Type: Spontaneous
  Country: DE (occurrence: DE)
  Receive Date: 20241030
  Receipt Date: 20241030
  Transmission Date: 20250114
  Serious: Yes (Death)
  Sender: ACCORD
  Company Number: None

PATIENT
  Sex: Female

DRUGS (4)
  1. LEVETIRACETAM [Suspect]
     Active Substance: LEVETIRACETAM
     Indication: Epilepsy
     Dosage: 1-0-1
  2. RISPERIDONE [Concomitant]
     Active Substance: RISPERIDONE
     Indication: Schizophrenia
     Dosage: 1-0-1,5
  3. PIPAMPERONE HYDROCHLORIDE [Concomitant]
     Active Substance: PIPAMPERONE HYDROCHLORIDE
     Indication: Schizophrenia
     Dosage: 0-0-0-1/2 AND HALF A TABLET UP TO 4X DAILY AS REQUIRED
  4. BIPERIDEN [Concomitant]
     Active Substance: BIPERIDEN

REACTIONS (2)
  - Torticollis [Fatal]
  - Hypophagia [Fatal]

NARRATIVE: CASE EVENT DATE: 20240725
